FAERS Safety Report 7104943-X (Version None)
Quarter: 2010Q4

REPORT INFORMATION
  Report Type: 
  Country: None (occurrence: None)
  Receive Date: 20101116
  Receipt Date: 20101102
  Transmission Date: 20110411
  Serious: No
  Sender: FDA-Public Use
  Company Number: PHHY2010US75080

PATIENT
  Sex: Male

DRUGS (5)
  1. TASIGNA [Suspect]
  2. DULCOLAX [Interacting]
  3. ALPRAZOLAM [Concomitant]
  4. XANAX [Concomitant]
  5. UNKNOWN PAIN MEDICATIONS [Concomitant]

REACTIONS (1)
  - DRUG INTERACTION [None]
